FAERS Safety Report 5082415-4 (Version None)
Quarter: 2006Q3

REPORT INFORMATION
  Report Type: 
  Country: None (occurrence: None)
  Receive Date: 20060817
  Receipt Date: 20060802
  Transmission Date: 20061208
  Serious: Yes (Other)
  Sender: FDA-Public Use
  Company Number: JP-JPN-A200602931

PATIENT
  Age: 68 Year
  Sex: Male
  Weight: 54 kg

DRUGS (15)
  1. MODACIN [Suspect]
     Indication: PNEUMONIA PNEUMOCOCCAL
     Dosage: 2G VARIABLE DOSE
     Route: 042
     Dates: start: 20060731, end: 20060802
  2. DIAMOX [Concomitant]
     Indication: CHRONIC RESPIRATORY FAILURE
     Dosage: 250MG TWICE PER DAY
     Route: 048
     Dates: start: 19981228, end: 20060801
  3. EUGLUCON [Concomitant]
     Indication: DIABETES MELLITUS
     Dosage: 1.25MG TWICE PER DAY
     Route: 048
     Dates: start: 19981228, end: 20060801
  4. SELBEX [Concomitant]
     Indication: PROPHYLAXIS AGAINST GASTROINTESTINAL ULCER
     Dosage: 50MG THREE TIMES PER DAY
     Route: 048
     Dates: start: 19981228, end: 20060801
  5. THEOLONG [Concomitant]
     Indication: CHRONIC RESPIRATORY FAILURE
     Dosage: 200MG TWICE PER DAY
     Route: 048
     Dates: start: 19981228, end: 20060801
  6. KN3B [Concomitant]
     Indication: FLUID REPLACEMENT
     Route: 042
     Dates: start: 20060731, end: 20060802
  7. HUMULIN 70/30 [Concomitant]
     Indication: DIABETES MELLITUS
     Route: 058
     Dates: start: 20060801, end: 20060801
  8. AMINOFLUID [Concomitant]
     Indication: FLUID REPLACEMENT
     Dosage: 1000ML PER DAY
     Route: 042
     Dates: start: 20060802, end: 20060803
  9. GASTER [Concomitant]
     Indication: PROPHYLAXIS AGAINST GASTROINTESTINAL ULCER
     Dosage: 40MG PER DAY
     Route: 042
     Dates: start: 20060802
  10. VICCILLIN [Concomitant]
     Indication: PNEUMONIA PNEUMOCOCCAL
     Route: 042
     Dates: start: 20060802
  11. DIAMOX [Concomitant]
     Dosage: 500MG PER DAY
     Route: 042
     Dates: start: 20060802
  12. UNKNOWN DRUG [Concomitant]
     Indication: NUTRITIONAL SUPPORT
     Dosage: 500ML PER DAY
     Route: 042
     Dates: start: 20060803
  13. MINERALIN [Concomitant]
     Indication: NUTRITIONAL SUPPORT
     Dosage: 2ML PER DAY
     Route: 042
     Dates: start: 20060803
  14. PREDOPA [Concomitant]
     Indication: FLUID REPLACEMENT
     Route: 042
     Dates: start: 20060803
  15. DORMICUM [Concomitant]
     Indication: SEDATION
     Route: 042
     Dates: start: 20060803

REACTIONS (11)
  - BLOOD UREA INCREASED [None]
  - CARDIAC FAILURE [None]
  - HAEMATEMESIS [None]
  - HYPERCAPNIA [None]
  - HYPERHIDROSIS [None]
  - PAINFUL RESPIRATION [None]
  - PALLOR [None]
  - PLEURAL EFFUSION [None]
  - PROLONGED EXPIRATION [None]
  - URINARY INCONTINENCE [None]
  - WHEEZING [None]
